FAERS Safety Report 21655484 (Version 1)
Quarter: 2022Q4

REPORT INFORMATION
  Report Type: Other
  Country: None (occurrence: PL)
  Receive Date: 20221129
  Receipt Date: 20221129
  Transmission Date: 20230113
  Serious: Yes (Death, Other)
  Sender: FDA-Public Use
  Company Number: PL-ACI HealthCare Limited-2135336

PATIENT
  Age: 24 Year
  Sex: Female

DRUGS (5)
  1. SERTRALINE HYDROCHLORIDE [Suspect]
     Active Substance: SERTRALINE HYDROCHLORIDE
     Indication: Product used for unknown indication
     Route: 065
  2. N-ETHYLHEXEDRONE [Suspect]
     Active Substance: N-ETHYLHEXEDRONE
     Route: 065
  3. ADINAZOLAM [Suspect]
     Active Substance: ADINAZOLAM
     Route: 065
  4. CLIPREDRONE [Suspect]
     Active Substance: CLIPREDRONE
     Route: 065
  5. 4-CHLOROMETHCATHINONE [Suspect]
     Active Substance: 4-CHLOROMETHCATHINONE
     Route: 065

REACTIONS (1)
  - Toxicity to various agents [Fatal]
